FAERS Safety Report 7943303-6 (Version None)
Quarter: 2011Q4

REPORT INFORMATION
  Report Type: 
  Country: None (occurrence: None)
  Receive Date: 20111128
  Receipt Date: 20111123
  Transmission Date: 20120403
  Serious: Yes (Death, Hospitalization, Other)
  Sender: FDA-Public Use
  Company Number: PHBS2006BR07344

PATIENT
  Sex: Female
  Weight: 25 kg

DRUGS (8)
  1. LIDOCAINE [Concomitant]
     Indication: PARKINSON'S DISEASE
     Dosage: 5 MG, BID
  2. RIVASTIGMINE TARTRATE [Concomitant]
     Dosage: 1.5 MG, QD
     Dates: start: 20050818, end: 20050818
  3. SINEMET [Concomitant]
     Indication: PARKINSON'S DISEASE
     Dosage: 25 MG, UNK
  4. GLEEVEC [Suspect]
     Indication: GASTROINTESTINAL STROMAL TUMOUR
     Dosage: 400 MG, QD
     Route: 048
     Dates: start: 20040601, end: 20060509
  5. ASCORBIC ACID [Concomitant]
     Dosage: 500 MG, QD
  6. COMBINATIONS OF VITAMINS [Concomitant]
  7. DONEPEZIL HYDROCHLORIDE [Concomitant]
     Dosage: 5 MG, QD
  8. CYCLOPHOSPHAMIDE [Suspect]

REACTIONS (6)
  - GASTROINTESTINAL STROMAL TUMOUR [None]
  - PELVIC MASS [None]
  - RENAL CYST [None]
  - WEIGHT DECREASED [None]
  - DRUG INEFFECTIVE [None]
  - NEOPLASM MALIGNANT [None]
